FAERS Safety Report 20124537 (Version 1)
Quarter: 2021Q4

REPORT INFORMATION
  Report Type: Spontaneous
  Country: US (occurrence: US)
  Receive Date: 20211129
  Receipt Date: 20211129
  Transmission Date: 20220303
  Serious: Yes (Other)
  Sender: FDA-Public Use
  Company Number: US-CELGENE-USA-20211106875

PATIENT
  Sex: Male
  Weight: 89.892 kg

DRUGS (60)
  1. REVLIMID [Suspect]
     Active Substance: LENALIDOMIDE
     Indication: Plasma cell myeloma
     Dosage: 25 MILLIGRAM
     Route: 048
     Dates: start: 20190923
  2. REVLIMID [Suspect]
     Active Substance: LENALIDOMIDE
     Dosage: 10 MILLIGRAM
     Route: 048
     Dates: start: 202102
  3. ZOMETA [Concomitant]
     Active Substance: ZOLEDRONIC ACID
     Indication: Product used for unknown indication
     Route: 065
  4. DILTIAZEM [Concomitant]
     Active Substance: DILTIAZEM
     Indication: Product used for unknown indication
     Route: 065
  5. GRANIX [Concomitant]
     Active Substance: TBO-FILGRASTIM
     Indication: Product used for unknown indication
     Route: 065
  6. GRANIX [Concomitant]
     Active Substance: TBO-FILGRASTIM
     Route: 065
  7. GRANIX [Concomitant]
     Active Substance: TBO-FILGRASTIM
     Route: 065
  8. GRANIX [Concomitant]
     Active Substance: TBO-FILGRASTIM
     Route: 065
  9. GRANIX [Concomitant]
     Active Substance: TBO-FILGRASTIM
     Route: 065
  10. GRANIX [Concomitant]
     Active Substance: TBO-FILGRASTIM
     Route: 065
  11. GRANIX [Concomitant]
     Active Substance: TBO-FILGRASTIM
     Route: 065
  12. HYDROCHLOROTHIAZIDE [Concomitant]
     Active Substance: HYDROCHLOROTHIAZIDE
     Indication: Product used for unknown indication
     Route: 065
  13. HYDROCHLOROTHIAZIDE [Concomitant]
     Active Substance: HYDROCHLOROTHIAZIDE
     Route: 065
  14. HYDROCHLOROTHIAZIDE [Concomitant]
     Active Substance: HYDROCHLOROTHIAZIDE
     Route: 065
  15. HYDROCHLOROTHIAZIDE [Concomitant]
     Active Substance: HYDROCHLOROTHIAZIDE
     Route: 065
  16. HYDROCHLOROTHIAZIDE [Concomitant]
     Active Substance: HYDROCHLOROTHIAZIDE
     Route: 065
  17. HYDROCHLOROTHIAZIDE [Concomitant]
     Active Substance: HYDROCHLOROTHIAZIDE
     Route: 065
  18. HYDROCHLOROTHIAZIDE [Concomitant]
     Active Substance: HYDROCHLOROTHIAZIDE
     Route: 065
  19. CALCIUM [Concomitant]
     Active Substance: CALCIUM
     Indication: Product used for unknown indication
     Route: 065
  20. CALCIUM [Concomitant]
     Active Substance: CALCIUM
     Route: 065
  21. CALCIUM [Concomitant]
     Active Substance: CALCIUM
     Route: 065
  22. CALCIUM [Concomitant]
     Active Substance: CALCIUM
     Route: 065
  23. CALCIUM [Concomitant]
     Active Substance: CALCIUM
     Route: 065
  24. CALCIUM [Concomitant]
     Active Substance: CALCIUM
     Route: 065
  25. CALCIUM [Concomitant]
     Active Substance: CALCIUM
     Route: 065
  26. VELCADE [Concomitant]
     Active Substance: BORTEZOMIB
     Indication: Product used for unknown indication
     Route: 065
  27. VELCADE [Concomitant]
     Active Substance: BORTEZOMIB
     Route: 065
  28. VELCADE [Concomitant]
     Active Substance: BORTEZOMIB
     Route: 065
  29. VELCADE [Concomitant]
     Active Substance: BORTEZOMIB
     Route: 065
  30. VELCADE [Concomitant]
     Active Substance: BORTEZOMIB
     Route: 065
  31. VELCADE [Concomitant]
     Active Substance: BORTEZOMIB
     Route: 065
  32. VELCADE [Concomitant]
     Active Substance: BORTEZOMIB
     Route: 065
  33. LISINOPRIL [Concomitant]
     Active Substance: LISINOPRIL
     Indication: Product used for unknown indication
     Dosage: 10
     Route: 065
  34. LISINOPRIL [Concomitant]
     Active Substance: LISINOPRIL
     Route: 065
  35. LISINOPRIL [Concomitant]
     Active Substance: LISINOPRIL
     Route: 065
  36. LISINOPRIL [Concomitant]
     Active Substance: LISINOPRIL
     Route: 065
  37. LISINOPRIL [Concomitant]
     Active Substance: LISINOPRIL
     Route: 065
  38. LISINOPRIL [Concomitant]
     Active Substance: LISINOPRIL
     Route: 065
  39. LISINOPRIL [Concomitant]
     Active Substance: LISINOPRIL
     Route: 065
  40. BYSTOLIC [Concomitant]
     Active Substance: NEBIVOLOL HYDROCHLORIDE
     Indication: Product used for unknown indication
     Dosage: 10
     Route: 065
  41. BYSTOLIC [Concomitant]
     Active Substance: NEBIVOLOL HYDROCHLORIDE
     Route: 065
  42. BYSTOLIC [Concomitant]
     Active Substance: NEBIVOLOL HYDROCHLORIDE
     Route: 065
  43. BYSTOLIC [Concomitant]
     Active Substance: NEBIVOLOL HYDROCHLORIDE
     Route: 065
  44. BYSTOLIC [Concomitant]
     Active Substance: NEBIVOLOL HYDROCHLORIDE
     Route: 065
  45. BYSTOLIC [Concomitant]
     Active Substance: NEBIVOLOL HYDROCHLORIDE
     Route: 065
  46. BYSTOLIC [Concomitant]
     Active Substance: NEBIVOLOL HYDROCHLORIDE
     Route: 065
  47. ASPIRIN [Concomitant]
     Active Substance: ASPIRIN
     Indication: Product used for unknown indication
     Route: 065
  48. ASPIRIN [Concomitant]
     Active Substance: ASPIRIN
     Route: 065
  49. ASPIRIN [Concomitant]
     Active Substance: ASPIRIN
     Route: 065
  50. ASPIRIN [Concomitant]
     Active Substance: ASPIRIN
     Route: 065
  51. ASPIRIN [Concomitant]
     Active Substance: ASPIRIN
     Route: 065
  52. ASPIRIN [Concomitant]
     Active Substance: ASPIRIN
     Route: 065
  53. ASPIRIN [Concomitant]
     Active Substance: ASPIRIN
     Route: 065
  54. ACYCLOVIR [Concomitant]
     Active Substance: ACYCLOVIR
     Indication: Product used for unknown indication
     Dosage: 400
     Route: 065
  55. ACYCLOVIR [Concomitant]
     Active Substance: ACYCLOVIR
     Route: 065
  56. ACYCLOVIR [Concomitant]
     Active Substance: ACYCLOVIR
     Route: 065
  57. ACYCLOVIR [Concomitant]
     Active Substance: ACYCLOVIR
     Route: 065
  58. ACYCLOVIR [Concomitant]
     Active Substance: ACYCLOVIR
     Route: 065
  59. ACYCLOVIR [Concomitant]
     Active Substance: ACYCLOVIR
     Route: 065
  60. ACYCLOVIR [Concomitant]
     Active Substance: ACYCLOVIR
     Route: 065

REACTIONS (2)
  - Neuropathy peripheral [Unknown]
  - Fatigue [Unknown]
